FAERS Safety Report 14693207 (Version 1)
Quarter: 2018Q1

REPORT INFORMATION
  Report Type: Spontaneous
  Country: BE (occurrence: BE)
  Receive Date: 20180329
  Receipt Date: 20180329
  Transmission Date: 20180509
  Serious: Yes (Death, Hospitalization, Other)
  Sender: FDA-Public Use
  Company Number: BE-BRISTOL-MYERS SQUIBB COMPANY-BMS-2018-026067

PATIENT

DRUGS (1)
  1. BELATACEPT [Suspect]
     Active Substance: BELATACEPT
     Indication: PRODUCT USED FOR UNKNOWN INDICATION
     Dosage: UNAVAILABLE
     Route: 065

REACTIONS (6)
  - Death [Fatal]
  - Renal failure [Unknown]
  - General physical health deterioration [Unknown]
  - Cardiac failure [Unknown]
  - Sepsis [Unknown]
  - Hypoperfusion [Unknown]

NARRATIVE: CASE EVENT DATE: 20180222
